FAERS Safety Report 18565101 (Version 2)
Quarter: 2020Q4

REPORT INFORMATION
  Report Type: Spontaneous
  Country: FR (occurrence: FR)
  Receive Date: 20201201
  Receipt Date: 20201204
  Transmission Date: 20210114
  Serious: Yes (Life-Threatening, Hospitalization, Other)
  Sender: FDA-Public Use
  Company Number: PHHY2012FR033466

PATIENT
  Age: 64 Year
  Sex: Female

DRUGS (4)
  1. ACETAMINOPHEN (PARACETAMOL) [Suspect]
     Active Substance: ACETAMINOPHEN
     Indication: PRODUCT USED FOR UNKNOWN INDICATION
     Dosage: 100 GRAM, (1.66 G/KG))
     Route: 048
  2. ETHYLENE GLYCOL [Concomitant]
     Active Substance: ETHYLENE GLYCOL
     Indication: PRODUCT USED FOR UNKNOWN INDICATION
     Dosage: UNK
     Route: 065
  3. METHANOL [Concomitant]
     Active Substance: METHYL ALCOHOL
     Indication: PRODUCT USED FOR UNKNOWN INDICATION
     Dosage: UNK
     Route: 065
  4. SALICYLIC ACID. [Concomitant]
     Active Substance: SALICYLIC ACID
     Indication: PRODUCT USED FOR UNKNOWN INDICATION
     Dosage: UNK
     Route: 065

REACTIONS (15)
  - Electrocardiogram QRS complex prolonged [Recovered/Resolved]
  - Hypotension [Unknown]
  - Toxicity to various agents [Unknown]
  - Coagulopathy [Unknown]
  - Hepatitis toxic [Unknown]
  - Coma [Recovered/Resolved]
  - Overdose [Unknown]
  - Rhabdomyolysis [Unknown]
  - Bradyarrhythmia [Recovered/Resolved]
  - Hypothermia [Recovered/Resolved]
  - Poisoning deliberate [Unknown]
  - Loss of consciousness [Recovered/Resolved]
  - Bradycardia [Unknown]
  - Intentional overdose [Unknown]
  - Metabolic acidosis [Recovered/Resolved]
